FAERS Safety Report 13021393 (Version 1)
Quarter: 2016Q4

REPORT INFORMATION
  Report Type: Spontaneous
  Country: US (occurrence: US)
  Receive Date: 20161213
  Receipt Date: 20161213
  Transmission Date: 20170207
  Serious: Yes (Hospitalization)
  Sender: FDA-Public Use
  Company Number: US-ASTRAZENECA-2016SF19855

PATIENT
  Age: 115 Day
  Sex: Male
  Weight: 5.7 kg

DRUGS (3)
  1. SYNAGIS [Suspect]
     Active Substance: PALIVIZUMAB
     Indication: ANTIVIRAL PROPHYLAXIS
     Route: 030
     Dates: start: 20161105
  2. BABY ASPIRIN, CHEWABLE ASPIRIN [Concomitant]
     Route: 048
     Dates: start: 20160809
  3. VSL NUMBER 3 [Concomitant]
     Route: 048
     Dates: start: 20160921

REACTIONS (2)
  - Urticaria [Recovering/Resolving]
  - Obstructive airways disorder [Recovering/Resolving]

NARRATIVE: CASE EVENT DATE: 20161112
